FAERS Safety Report 7878488-3 (Version None)
Quarter: 2011Q4

REPORT INFORMATION
  Report Type: 
  Country: None (occurrence: None)
  Receive Date: 20111028
  Receipt Date: 20111018
  Transmission Date: 20120403
  Serious: Yes (Death)
  Sender: FDA-Public Use
  Company Number: ADR-2011-11373

PATIENT
  Age: 87 Year
  Sex: Male

DRUGS (1)
  1. BACLOFEN [Suspect]
     Indication: BREAST PAIN
     Dosage: 87.4 MCG,DAILY,INTRATH
     Route: 037

REACTIONS (1)
  - BREAST CANCER METASTATIC [None]
